FAERS Safety Report 7833911-5 (Version None)
Quarter: 2011Q4

REPORT INFORMATION
  Report Type: 
  Country: None (occurrence: None)
  Receive Date: 20111020
  Receipt Date: 20111006
  Transmission Date: 20120403
  Serious: Yes (Other)
  Sender: FDA-Public Use
  Company Number: 2011GB0229

PATIENT
  Age: 29 Year
  Sex: Female

DRUGS (23)
  1. ONCASPAR [Suspect]
     Dosage: (1725 IU, D4+18) INTRAVENOUS
     Route: 042
     Dates: start: 20110321, end: 20110404
  2. ITRACONAZOLE [Concomitant]
  3. ALLOPURINOL [Concomitant]
  4. NORETHINDRONE [Concomitant]
  5. DIFFLAN (BENZYDAMINE HYDROCHLORIDE) [Concomitant]
  6. TAZOCIN (TAZOCIN) [Concomitant]
  7. ACYCLOVIR [Concomitant]
  8. ENOXAPARIN SODIUM [Concomitant]
  9. ACYCLOVIR [Concomitant]
  10. BENZOCAINE + CODEINE MOUTHWASH (BENZOCAINE, CODEIN) [Concomitant]
  11. CYCLICINE (CYCLICINE) [Concomitant]
  12. ACETAMINOPHEN [Concomitant]
  13. CODEINE SULFATE [Concomitant]
  14. PIPERACILLIN AND TAZOBACTAM [Concomitant]
  15. CHLORHEXIDINE GLUCONATE [Concomitant]
  16. CYCLOSPORINE [Concomitant]
  17. PALIFERMIN (PALIFERMIN) [Suspect]
     Indication: STOMATITIS
     Dosage: (4.3 MG, PER PROTOCOL) INTRAVENOUS
     Route: 042
     Dates: start: 20110717, end: 20110730
  18. PALIFERMIN (PALIFERMIN) [Suspect]
     Indication: PROPHYLAXIS
     Dosage: (4.3 MG, PER PROTOCOL) INTRAVENOUS
     Route: 042
     Dates: start: 20110717, end: 20110730
  19. NYSTATIN [Concomitant]
  20. ITRACONAZOLE [Concomitant]
  21. MORPHINE SULPHATE (MORPHINE SULPHATE) [Concomitant]
  22. TEICOPLANIN (TEICOPLANIN) [Concomitant]
  23. ONDANSETRON [Concomitant]

REACTIONS (4)
  - HYPERBILIRUBINAEMIA [None]
  - PYREXIA [None]
  - ORAL PAIN [None]
  - MUCOSAL INFLAMMATION [None]
